FAERS Safety Report 17975938 (Version 2)
Quarter: 2020Q3

REPORT INFORMATION
  Report Type: Spontaneous
  Country: US (occurrence: US)
  Receive Date: 20200702
  Receipt Date: 20200707
  Transmission Date: 20201103
  Serious: No
  Sender: FDA-Public Use
  Company Number: US-JNJFOC-20200634937

PATIENT
  Age: 71 Year

DRUGS (1)
  1. WOMENS ROGAINE UNSCENTED [Suspect]
     Active Substance: MINOXIDIL
     Indication: ALOPECIA
     Dosage: OVER 4 YEARS
     Route: 065
     Dates: start: 20180601

REACTIONS (1)
  - Alopecia [Not Recovered/Not Resolved]
